FAERS Safety Report 17861033 (Version 1)
Quarter: 2020Q2

REPORT INFORMATION
  Report Type: Spontaneous
  Country: US (occurrence: US)
  Receive Date: 20200604
  Receipt Date: 20200604
  Transmission Date: 20200714
  Serious: Yes (Death)
  Sender: FDA-Public Use
  Company Number: None

PATIENT
  Age: 79 Year
  Sex: Female
  Weight: 113 kg

DRUGS (16)
  1. NOVOLOG [Concomitant]
     Active Substance: INSULIN ASPART
  2. LEVOTHYROXINE. [Concomitant]
     Active Substance: LEVOTHYROXINE
  3. SENNA S [Concomitant]
     Active Substance: DOCUSATE SODIUM\SENNA LEAF
  4. FERROUS SULFATE. [Concomitant]
     Active Substance: FERROUS SULFATE
  5. AMLODEPINE [Concomitant]
  6. ATORVASTATIN [Concomitant]
     Active Substance: ATORVASTATIN
  7. GUAIFENESIN. [Concomitant]
     Active Substance: GUAIFENESIN
  8. REMDESIVIR. [Suspect]
     Active Substance: REMDESIVIR
     Indication: COVID-19
     Route: 042
     Dates: start: 20200529, end: 20200602
  9. BUMETANIDE. [Concomitant]
     Active Substance: BUMETANIDE
  10. LANTUS [Concomitant]
     Active Substance: INSULIN GLARGINE
  11. ACETAMENOPHEN [Concomitant]
  12. CEFTRIAXONE. [Concomitant]
     Active Substance: CEFTRIAXONE
  13. TIOTROPIUM [Concomitant]
     Active Substance: TIOTROPIUM
  14. DABIGATRAN [Concomitant]
     Active Substance: DABIGATRAN
  15. MAGNESIUM SULFATE. [Concomitant]
     Active Substance: MAGNESIUM SULFATE
  16. VANCOMYCIN [Concomitant]
     Active Substance: VANCOMYCIN

REACTIONS (1)
  - Respiratory arrest [None]

NARRATIVE: CASE EVENT DATE: 20200603
